FAERS Safety Report 8921066 (Version 1)
Quarter: 2012Q4

REPORT INFORMATION
  Report Type: 
  Country: US (occurrence: US)
  Receive Date: 20121121
  Receipt Date: 20121121
  Transmission Date: 20130627
  Serious: Yes (Hospitalization, Other)
  Sender: FDA-Public Use
  Company Number: US-ASTRAZENECA-2012SE87333

PATIENT
  Age: 39 Year
  Sex: Female
  Weight: 54.4 kg

DRUGS (8)
  1. SEROQUEL [Suspect]
     Indication: BIPOLAR DISORDER
     Route: 048
     Dates: start: 2009, end: 2011
  2. SEROQUEL [Suspect]
     Indication: DEPRESSION
     Route: 048
     Dates: start: 2009, end: 2011
  3. SEROQUEL [Suspect]
     Indication: BIPOLAR DISORDER
     Route: 048
     Dates: start: 2009, end: 2011
  4. SEROQUEL [Suspect]
     Indication: DEPRESSION
     Route: 048
     Dates: start: 2009, end: 2011
  5. LISINOPRIL [Concomitant]
     Route: 048
     Dates: start: 2000
  6. KEPPRA [Concomitant]
     Indication: CONVULSION
     Dates: start: 2011
  7. LOPRESSOR [Concomitant]
     Dates: start: 2000
  8. NORVASC [Concomitant]
     Dates: start: 2000

REACTIONS (12)
  - Mental disorder [Recovering/Resolving]
  - Suicidal ideation [Not Recovered/Not Resolved]
  - Pancreatitis chronic [Not Recovered/Not Resolved]
  - Aggression [Not Recovered/Not Resolved]
  - Liver function test abnormal [Unknown]
  - Gallbladder disorder [Unknown]
  - Psychotic disorder [Not Recovered/Not Resolved]
  - Feeling abnormal [Unknown]
  - Amnesia [Unknown]
  - Adverse event [Unknown]
  - Intentional drug misuse [Unknown]
  - Drug dose omission [Unknown]
